FAERS Safety Report 5713582-4 (Version None)
Quarter: 2008Q2

REPORT INFORMATION
  Report Type: 
  Country: None (occurrence: None)
  Receive Date: 20080422
  Receipt Date: 20080409
  Transmission Date: 20081010
  Serious: Yes (Other)
  Sender: FDA-Public Use
  Company Number: GB-PFIZER INC-2008033896

PATIENT
  Sex: Female

DRUGS (2)
  1. NICOTINE [Suspect]
     Route: 055
  2. NIQUITIN [Suspect]
     Dosage: DAILY DOSE:21MG
     Route: 062

REACTIONS (6)
  - CHEST PAIN [None]
  - FEELING ABNORMAL [None]
  - MEDICATION ERROR [None]
  - OVERDOSE [None]
  - PAIN IN EXTREMITY [None]
  - PANIC REACTION [None]
